FAERS Safety Report 18441336 (Version 2)
Quarter: 2020Q4

REPORT INFORMATION
  Report Type: Report from Study
  Country: ES (occurrence: ES)
  Receive Date: 20201029
  Receipt Date: 20201110
  Transmission Date: 20210114
  Serious: Yes (Hospitalization, Other)
  Sender: FDA-Public Use
  Company Number: ES-BRISTOL-MYERS SQUIBB COMPANY-BMS-2020-088967

PATIENT
  Age: 46 Year
  Sex: Female
  Weight: 39.5 kg

DRUGS (5)
  1. SUNITINIB MALATE. [Suspect]
     Active Substance: SUNITINIB MALATE
     Dosage: 25 MILLIGRAM
     Route: 048
     Dates: start: 20201008, end: 20201019
  2. FENTANIL [Concomitant]
     Active Substance: FENTANYL
     Indication: PAIN
     Dosage: UNK
     Route: 062
     Dates: start: 201904
  3. SUNITINIB MALATE. [Suspect]
     Active Substance: SUNITINIB MALATE
     Indication: SOLITARY FIBROUS TUMOUR
     Dosage: 37.5 MILLIGRAM, QD
     Route: 048
     Dates: start: 20200924, end: 20201008
  4. METOCLOPRAMIDA [METOCLOPRAMIDE] [Concomitant]
     Active Substance: METOCLOPRAMIDE
     Indication: NAUSEA
     Dosage: UNK
     Route: 048
     Dates: start: 20200924
  5. NIVOLUMAB [Suspect]
     Active Substance: NIVOLUMAB
     Indication: SOLITARY FIBROUS TUMOUR
     Dosage: 240 MILLIGRAM, Q2WK
     Route: 042
     Dates: start: 20201008, end: 20201019

REACTIONS (1)
  - Febrile neutropenia [Recovering/Resolving]

NARRATIVE: CASE EVENT DATE: 20201019
